FAERS Safety Report 9467102 (Version 1)
Quarter: 2013Q3

REPORT INFORMATION
  Report Type: Spontaneous
  Country: US (occurrence: US)
  Receive Date: 20130820
  Receipt Date: 20130820
  Transmission Date: 20140515
  Serious: Yes (Life-Threatening, Hospitalization, Other)
  Sender: FDA-Public Use
  Company Number: US-RB-057334-13

PATIENT
  Age: 13 Month
  Sex: 0

DRUGS (1)
  1. BUPRENORPHINE [Suspect]
     Indication: PRODUCT USED FOR UNKNOWN INDICATION
     Dosage: DOSING  DETAILS UNKNOWN; UNKNOWN DRUG FORMULATION
     Route: 065
     Dates: start: 2009, end: 2009

REACTIONS (4)
  - Accidental exposure to product by child [Unknown]
  - Respiratory arrest [Unknown]
  - Cardiac arrest [Unknown]
  - Coma [Unknown]
